FAERS Safety Report 4515014-0 (Version None)
Quarter: 2004Q4

REPORT INFORMATION
  Report Type: 
  Country: None (occurrence: None)
  Receive Date: 20041129
  Receipt Date: 20041129
  Transmission Date: 20050328
  Serious: Yes (Other)
  Sender: FDA-Public Use
  Company Number: None

PATIENT
  Sex: Male
  Weight: 94.3482 kg

DRUGS (1)
  1. AMIODARONE    200MG [Suspect]
     Indication: ATRIAL FIBRILLATION
     Dosage: 1200 MG PER   DAILY    UNKNOWN
     Dates: start: 20040921, end: 20041124

REACTIONS (2)
  - RESTLESSNESS [None]
  - VISUAL DISTURBANCE [None]
